FAERS Safety Report 21295946 (Version 1)
Quarter: 2022Q3

REPORT INFORMATION
  Report Type: Spontaneous
  Country: US (occurrence: US)
  Receive Date: 20220906
  Receipt Date: 20220906
  Transmission Date: 20221027
  Serious: No
  Sender: FDA-Public Use
  Company Number: US-BIOGEN-2022BI01152723

PATIENT
  Sex: Female

DRUGS (4)
  1. TECFIDERA [Suspect]
     Active Substance: DIMETHYL FUMARATE
     Indication: Multiple sclerosis
     Route: 050
     Dates: start: 2017, end: 2019
  2. KESIMPTA [Concomitant]
     Active Substance: OFATUMUMAB
     Route: 050
  3. IBUPROFEN [Concomitant]
     Active Substance: IBUPROFEN
     Route: 050
  4. BOTOX [Concomitant]
     Active Substance: ONABOTULINUMTOXINA
     Route: 050

REACTIONS (1)
  - Drug ineffective [Unknown]
